FAERS Safety Report 8403235-6 (Version None)
Quarter: 2012Q2

REPORT INFORMATION
  Report Type: 
  Country: None (occurrence: None)
  Receive Date: 20120601
  Receipt Date: 20120524
  Transmission Date: 20120825
  Serious: Yes (Hospitalization, Other)
  Sender: FDA-Public Use
  Company Number: US-MERCK-1110USA04122

PATIENT
  Age: 55 Year
  Sex: Female
  Weight: 70 kg

DRUGS (8)
  1. FOSAMAX [Suspect]
     Indication: OSTEOPOROSIS
     Route: 048
     Dates: start: 19990101, end: 20001001
  2. FOSAMAX [Suspect]
     Route: 048
     Dates: start: 20000101, end: 20060201
  3. FOSAMAX [Suspect]
     Route: 048
     Dates: start: 20080101, end: 20091001
  4. ALENDRONATE SODIUM [Suspect]
     Route: 065
     Dates: start: 20080510
  5. FOSAMAX [Suspect]
     Indication: OSTEOPENIA
     Route: 048
     Dates: start: 19990101, end: 20001001
  6. FOSAMAX [Suspect]
     Route: 048
     Dates: start: 20000101, end: 20060201
  7. ACTONEL [Suspect]
     Indication: OSTEOPOROSIS
     Route: 048
     Dates: start: 20060101, end: 20080501
  8. VITAMINS (UNSPECIFIED) [Concomitant]
     Route: 065
     Dates: start: 19900101

REACTIONS (36)
  - HAND FRACTURE [None]
  - COLITIS MICROSCOPIC [None]
  - ILIOTIBIAL BAND SYNDROME [None]
  - HYPERLIPIDAEMIA [None]
  - UTERINE PROLAPSE [None]
  - ATELECTASIS [None]
  - VAGINAL PROLAPSE [None]
  - ADVERSE EVENT [None]
  - SEBORRHOEIC KERATOSIS [None]
  - DIVERTICULUM [None]
  - ESSENTIAL HYPERTENSION [None]
  - CYSTOCELE [None]
  - HYPOTHYROIDISM [None]
  - WEIGHT INCREASED [None]
  - HAEMORRHOIDS [None]
  - COLONIC POLYP [None]
  - INFECTION [None]
  - GLUCOSE TOLERANCE IMPAIRED [None]
  - LOW TURNOVER OSTEOPATHY [None]
  - DRUG INEFFECTIVE [None]
  - NASOPHARYNGITIS [None]
  - RECTOCELE [None]
  - PAIN IN EXTREMITY [None]
  - UMBILICAL HERNIA [None]
  - TONSILLAR DISORDER [None]
  - ACROCHORDON [None]
  - FEMUR FRACTURE [None]
  - OVARIAN CYST [None]
  - ADENOIDAL DISORDER [None]
  - BURSITIS [None]
  - HORMONE THERAPY [None]
  - VITAMIN D DEFICIENCY [None]
  - STRESS URINARY INCONTINENCE [None]
  - CHOLELITHIASIS [None]
  - HUMERUS FRACTURE [None]
  - INAPPROPRIATE SCHEDULE OF DRUG ADMINISTRATION [None]
